FAERS Safety Report 12334410 (Version 1)
Quarter: 2016Q2

REPORT INFORMATION
  Report Type: Other
  Country: US (occurrence: US)
  Receive Date: 20160504
  Receipt Date: 20160504
  Transmission Date: 20160815
  Serious: Yes (Death, Hospitalization, Other)
  Sender: FDA-Public Use
  Company Number: US-MDT-ADR-2016-00796

PATIENT
  Age: 26 Year
  Sex: Male

DRUGS (2)
  1. BACLOFEN. [Suspect]
     Active Substance: BACLOFEN
     Route: 037
  2. ANTI-EPILEPTIC DRUGS [Suspect]
     Active Substance: UNSPECIFIED INGREDIENT
     Route: 065

REACTIONS (9)
  - Muscle spasticity [Unknown]
  - Constipation [Recovered/Resolved]
  - Adhesion [Unknown]
  - Cerebral ventricle dilatation [Unknown]
  - Fascial rupture [Unknown]
  - Headache [Unknown]
  - Abdominal pain [Recovered/Resolved]
  - Condition aggravated [Fatal]
  - Epilepsy [Fatal]
